FAERS Safety Report 13610284 (Version 1)
Quarter: 2017Q2

REPORT INFORMATION
  Report Type: Spontaneous
  Country: US (occurrence: US)
  Receive Date: 20170602
  Receipt Date: 20170602
  Transmission Date: 20170830
  Serious: Yes (Disabling)
  Sender: FDA-Public Use
  Company Number: None

PATIENT
  Sex: Female
  Weight: 81.65 kg

DRUGS (7)
  1. CYTOMEL [Concomitant]
     Active Substance: LIOTHYRONINE SODIUM
  2. MULTI VIT [Concomitant]
  3. APRISO [Suspect]
     Active Substance: MESALAMINE
     Indication: COLITIS
     Dosage: 4 PILLS ONCE IN THE AM SWALLOW 4 PILLS IN THE AM
     Dates: start: 20170424, end: 20170526
  4. SYNTHROID [Concomitant]
     Active Substance: LEVOTHYROXINE SODIUM
  5. VITAMIN C [Concomitant]
     Active Substance: ASCORBIC ACID
  6. EXT B VIT [Concomitant]
  7. EYE VIT DROPS [Concomitant]

REACTIONS (3)
  - Abdominal pain upper [None]
  - Hepatic enzyme increased [None]
  - Diarrhoea [None]
